FAERS Safety Report 6416956-1 (Version None)
Quarter: 2009Q4

REPORT INFORMATION
  Report Type: 
  Country: None (occurrence: None)
  Receive Date: 20091027
  Receipt Date: 20090609
  Transmission Date: 20100525
  Serious: No
  Sender: FDA-Public Use
  Company Number: US-ALLERGAN-0908331US

PATIENT
  Sex: Male

DRUGS (1)
  1. ALPHAGAN [Suspect]
     Indication: EYELID PTOSIS
     Dosage: UNK, UNKNOWN
     Route: 047

REACTIONS (1)
  - DRUG INEFFECTIVE [None]
